FAERS Safety Report 12180409 (Version 3)
Quarter: 2017Q4

REPORT INFORMATION
  Report Type: Spontaneous
  Country: US (occurrence: US)
  Receive Date: 20160315
  Receipt Date: 20171222
  Transmission Date: 20180320
  Serious: No
  Sender: FDA-Public Use
  Company Number: US-009507513-1603USA003478

PATIENT
  Age: 39 Year
  Sex: Female
  Weight: 78.01 kg

DRUGS (1)
  1. NUVARING [Suspect]
     Active Substance: ETHINYL ESTRADIOL\ETONOGESTREL
     Indication: CONTRACEPTION
     Dosage: (.015/.12MG) 1 VAGINAL RING EVERY 3 WEEKS THEN ONE WEEK RING FREE
     Route: 067
     Dates: start: 20170108

REACTIONS (5)
  - Vulvovaginal pain [Recovered/Resolved]
  - Device expulsion [Unknown]
  - Device breakage [Recovered/Resolved]
  - Product shape issue [Unknown]
  - Medical device site discomfort [Recovering/Resolving]

NARRATIVE: CASE EVENT DATE: 2017
